FAERS Safety Report 26022246 (Version 1)
Quarter: 2025Q4

REPORT INFORMATION
  Report Type: Spontaneous
  Country: CN (occurrence: CN)
  Receive Date: 20251110
  Receipt Date: 20251110
  Transmission Date: 20260117
  Serious: Yes (Death, Life-Threatening, Hospitalization, Disabling, Other)
  Sender: AMGEN
  Company Number: CN-AMGEN-CHNSP2025218228

PATIENT

DRUGS (1)
  1. SENSIPAR [Suspect]
     Active Substance: CINACALCET HYDROCHLORIDE
     Indication: Product used for unknown indication
     Dosage: UNK
     Route: 065

REACTIONS (89)
  - Cardiac death [Fatal]
  - Adverse event [Fatal]
  - Neoplasm malignant [Unknown]
  - Poisoning [Unknown]
  - Calciphylaxis [Unknown]
  - Parathyroid haemorrhage [Unknown]
  - Pancreatic atrophy [Unknown]
  - Oesophagitis ulcerative [Unknown]
  - Shunt infection [Unknown]
  - Renal cyst infection [Unknown]
  - Cardiac valve vegetation [Unknown]
  - Infected fistula [Unknown]
  - Peritonitis [Unknown]
  - Mitral valve stenosis [Unknown]
  - Arrhythmia [Unknown]
  - Multisystem inflammatory syndrome [Unknown]
  - Electrocardiogram QT prolonged [Unknown]
  - Arteriovenous fistula site infection [Unknown]
  - Blood parathyroid hormone abnormal [Unknown]
  - Adjusted calcium decreased [Unknown]
  - Laboratory test abnormal [Unknown]
  - Blood calcium abnormal [Unknown]
  - Blood phosphorus abnormal [Unknown]
  - Blood 1,25-dihydroxycholecalciferol increased [Unknown]
  - Fibroblast growth factor 23 increased [Unknown]
  - Angiotensin converting enzyme increased [Unknown]
  - Blood 25-hydroxycholecalciferol decreased [Unknown]
  - Urine calcium increased [Unknown]
  - Blood viscosity decreased [Unknown]
  - Body temperature abnormal [Unknown]
  - Vitamin D increased [Unknown]
  - Human chorionic gonadotropin increased [Unknown]
  - Blood pressure abnormal [Unknown]
  - Hypoalbuminaemia [Unknown]
  - Calcification metastatic [Unknown]
  - Hyperphosphataemia [Unknown]
  - Hypophagia [Unknown]
  - Appetite disorder [Unknown]
  - Iron overload [Unknown]
  - Hypermagnesaemia [Unknown]
  - Hypochloraemia [Unknown]
  - Hypoproteinaemia [Unknown]
  - Hypophosphataemia [Unknown]
  - Parathyroid hyperplasia [Unknown]
  - Hyperparathyroidism tertiary [Unknown]
  - Parathyroid cyst [Unknown]
  - Parathyroid gland enlargement [Unknown]
  - Parathyroid disorder [Unknown]
  - Hyperparathyroidism primary [Unknown]
  - Hypoparathyroidism [Unknown]
  - Hyperparathyroidism secondary [Unknown]
  - Hypercalcaemia of malignancy [Unknown]
  - Precocious puberty [Unknown]
  - Gastrointestinal tract irritation [Unknown]
  - Abdominal discomfort [Unknown]
  - Gastrointestinal disorder [Unknown]
  - Dysphagia [Unknown]
  - Calcinosis [Unknown]
  - Malaise [Unknown]
  - Mitral valve calcification [Unknown]
  - Angiodermatitis [Unknown]
  - Increased viscosity of bronchial secretion [Unknown]
  - Monocytopenia [Unknown]
  - Hyperparathyroidism [Unknown]
  - Injury [Unknown]
  - Procedural complication [Unknown]
  - Angiopathy [Unknown]
  - Musculoskeletal disorder [Unknown]
  - Connective tissue disorder [Unknown]
  - Nervous system disorder [Unknown]
  - Renal disorder [Unknown]
  - Urinary tract disorder [Unknown]
  - Ear disorder [Unknown]
  - Inner ear disorder [Unknown]
  - Hepatobiliary disease [Unknown]
  - Mental disorder [Unknown]
  - Eye disorder [Unknown]
  - Congenital anomaly [Unknown]
  - Reproductive tract disorder [Unknown]
  - Breast disorder [Unknown]
  - Benign neoplasm [Unknown]
  - Tetany [Unknown]
  - Hypercalcaemia [Unknown]
  - Calcium ionised decreased [Unknown]
  - Decreased appetite [Unknown]
  - Hypocalcaemia [Unknown]
  - Vomiting [Unknown]
  - Nausea [Unknown]
  - Abdominal pain upper [Unknown]
